FAERS Safety Report 8789856 (Version 1)
Quarter: 2012Q4

REPORT INFORMATION
  Report Type: 
  Country: US (occurrence: US)
  Receive Date: 20120917
  Receipt Date: 20120917
  Transmission Date: 20130627
  Serious: Yes (Other)
  Sender: FDA-Public Use
  Company Number: US-ASTRAZENECA-2012SE70686

PATIENT
  Age: 37 Year
  Sex: Male

DRUGS (2)
  1. SYMBICORT PMDI [Suspect]
     Route: 055
  2. PROAIR [Concomitant]

REACTIONS (5)
  - Immune system disorder [Unknown]
  - Pneumonia [Unknown]
  - Bronchiectasis [Unknown]
  - Sarcoidosis [Unknown]
  - Drug dose omission [Unknown]
